FAERS Safety Report 21151836 (Version 2)
Quarter: 2022Q3

REPORT INFORMATION
  Report Type: Spontaneous
  Country: US (occurrence: US)
  Receive Date: 20220730
  Receipt Date: 20220829
  Transmission Date: 20221026
  Serious: Yes (Other)
  Sender: FDA-Public Use
  Company Number: US-BRISTOL-MYERS SQUIBB COMPANY-2022-081103

PATIENT
  Age: 47 Year
  Sex: Female

DRUGS (1)
  1. ORENCIA [Suspect]
     Active Substance: ABATACEPT
     Indication: Rheumatoid arthritis
     Dosage: EXPIRATION DATE: 29-FEB-2024
     Route: 058
     Dates: start: 20220706

REACTIONS (4)
  - Pain [Unknown]
  - Hiatus hernia [Unknown]
  - Angina pectoris [Unknown]
  - Dyspepsia [Unknown]
